FAERS Safety Report 23369776 (Version 1)
Quarter: 2024Q1

REPORT INFORMATION
  Report Type: Spontaneous
  Country: NL (occurrence: NL)
  Receive Date: 20240105
  Receipt Date: 20240105
  Transmission Date: 20240410
  Serious: Yes (Disabling)
  Sender: FDA-Public Use
  Company Number: None

PATIENT
  Age: 72 Year
  Sex: Female

DRUGS (14)
  1. IBUPROFEN [Suspect]
     Active Substance: IBUPROFEN
     Indication: Arthralgia
     Dosage: 1X PER DAY 2 PIECES
     Route: 065
     Dates: start: 20231215, end: 20231216
  2. AMLODIPINE [Concomitant]
     Active Substance: AMLODIPINE BESYLATE
     Dosage: TABLET, 5 MG (MILLIGRAM)
  3. INHIBIN [HYDROQUININE HYDROBROMIDE] [Concomitant]
     Dosage: TABLET, 100 MG (MILLIGRAM)
  4. METOPROLOL [Concomitant]
     Active Substance: METOPROLOL
     Dosage: TABLET MET GEREGULEERDE AFGIFTE, 50 MG (MILLIGRAM)
  5. HYDROCHLOROTHIAZIDE [Concomitant]
     Active Substance: HYDROCHLOROTHIAZIDE
     Dosage: TABLET, 25 MG (MILLIGRAM)
  6. DAPAGLIFLOZIN [Concomitant]
     Active Substance: DAPAGLIFLOZIN
     Dosage: 10 MG
  7. POLYETHYLENE GLYCOLS [Concomitant]
     Active Substance: POLYETHYLENE GLYCOLS
     Dosage: POEDER VOOR DRANK
  8. CLOPIDOGREL [Concomitant]
     Active Substance: CLOPIDOGREL BISULFATE
     Dosage: TABLET, 75 MG (MILLIGRAM)
  9. SIMVASTATIN [Concomitant]
     Active Substance: SIMVASTATIN
     Dosage: FILMOMHULDE TABLET, 40 MG (MILLIGRAM)
  10. FLUTICASONE PROPIONATE\SALMETEROL XINAFOATE [Concomitant]
     Active Substance: FLUTICASONE PROPIONATE\SALMETEROL XINAFOATE
     Dosage: AEROSOL, 25/250 ?G/DOSIS (MICROGRAM PER DOSIS)
  11. CHOLECALCIFEROL [Concomitant]
     Active Substance: CHOLECALCIFEROL
     Dosage: CAPSULE, 5600 EENHEDEN
  12. GLICLAZIDE [Concomitant]
     Active Substance: GLICLAZIDE
     Dosage: TABLET MET GEREGULEERDE AFGIFTE, 80 MG (MILLIGRAM)
  13. PANTOPRAZOLE [Concomitant]
     Active Substance: PANTOPRAZOLE
     Dosage: MAAGSAPRESISTENTE TABLET, 40 MG (MILLIGRAM)
  14. LOSARTAN [Concomitant]
     Active Substance: LOSARTAN
     Dosage: FILMOMHULDE TABLET, 100 MG (MILLIGRAM)

REACTIONS (1)
  - Visual impairment [Not Recovered/Not Resolved]
